FAERS Safety Report 7631177-2 (Version None)
Quarter: 2011Q3

REPORT INFORMATION
  Report Type: 
  Country: None (occurrence: None)
  Receive Date: 20110725
  Receipt Date: 20110715
  Transmission Date: 20111222
  Serious: Yes (Other)
  Sender: FDA-Public Use
  Company Number: JP-JNJFOC-20110605033

PATIENT
  Age: 34 Year
  Sex: Female

DRUGS (2)
  1. RISPERDAL [Suspect]
     Dosage: PATIENT TOOK 3 MG X 11 = 33 MG
     Route: 048
  2. RISPERDAL [Suspect]
     Indication: PRODUCT USED FOR UNKNOWN INDICATION
     Route: 048
     Dates: start: 20110607

REACTIONS (4)
  - TACHYCARDIA [None]
  - ALKALOSIS [None]
  - MALAISE [None]
  - OVERDOSE [None]
